FAERS Safety Report 21912368 (Version 1)
Quarter: 2023Q1

REPORT INFORMATION
  Report Type: Spontaneous
  Country: US (occurrence: US)
  Receive Date: 20230125
  Receipt Date: 20230125
  Transmission Date: 20230418
  Serious: No
  Sender: FDA-Public Use
  Company Number: US-ALLERGAN-2225732US

PATIENT
  Sex: Female
  Weight: 77.11 kg

DRUGS (4)
  1. BOTOX [Suspect]
     Active Substance: ONABOTULINUMTOXINA
     Indication: Torticollis
     Dosage: UNK
     Dates: start: 20220610, end: 20220610
  2. BOTOX [Suspect]
     Active Substance: ONABOTULINUMTOXINA
     Indication: Blepharospasm
     Dosage: UNK
     Dates: start: 20220610, end: 20220610
  3. BOTOX [Suspect]
     Active Substance: ONABOTULINUMTOXINA
     Indication: Oromandibular dystonia
     Dosage: UNK
     Dates: start: 20220610, end: 20220610
  4. BOTOX [Suspect]
     Active Substance: ONABOTULINUMTOXINA
     Dosage: UNK
     Dates: start: 20220610, end: 20220610

REACTIONS (6)
  - Back pain [Recovering/Resolving]
  - Arthralgia [Recovering/Resolving]
  - Posture abnormal [Unknown]
  - Off label use [Unknown]
  - Muscle spasms [Unknown]
  - Therapeutic response shortened [Unknown]

NARRATIVE: CASE EVENT DATE: 20220101
